FAERS Safety Report 6551677-6 (Version None)
Quarter: 2010Q1

REPORT INFORMATION
  Report Type: 
  Country: None (occurrence: None)
  Receive Date: 20100126
  Receipt Date: 20100119
  Transmission Date: 20100710
  Serious: Yes (Other)
  Sender: FDA-Public Use
  Company Number: US-BAYER-200943706NA

PATIENT
  Age: 75 Year
  Sex: Male

DRUGS (12)
  1. MAGNEVIST [Suspect]
     Indication: NUCLEAR MAGNETIC RESONANCE IMAGING
  2. OMNISCAN [Suspect]
     Indication: NUCLEAR MAGNETIC RESONANCE IMAGING
  3. OPTIMARK [Suspect]
     Indication: NUCLEAR MAGNETIC RESONANCE IMAGING
  4. MULTIHANCE [Suspect]
     Indication: NUCLEAR MAGNETIC RESONANCE IMAGING
  5. PROHANCE [Suspect]
     Indication: NUCLEAR MAGNETIC RESONANCE IMAGING
  6. UNSPECIFIED GADOLINIUM BASED CONTRAST AGENT [Suspect]
     Indication: NUCLEAR MAGNETIC RESONANCE IMAGING
     Dosage: TOTAL DAILY DOSE: 40 ML
     Route: 042
     Dates: start: 20060710, end: 20060710
  7. UNSPECIFIED GADOLINIUM BASED CONTRAST AGENT [Suspect]
     Dosage: TOTAL DAILY DOSE: 20 ML
     Route: 042
     Dates: start: 20060713, end: 20060713
  8. UNSPECIFIED GADOLINIUM BASED CONTRAST AGENT [Suspect]
     Dates: start: 20061122, end: 20061122
  9. UNSPECIFIED GADOLINIUM BASED CONTRAST AGENT [Suspect]
     Dosage: TOTAL DAILY DOSE: 40 ML
     Route: 042
     Dates: start: 20061219, end: 20061219
  10. UNSPECIFIED GADOLINIUM BASED CONTRAST AGENT [Suspect]
     Dosage: TOTAL DAILY DOSE: 20 ML
     Route: 042
     Dates: start: 20061214, end: 20061214
  11. UNSPECIFIED GADOLINIUM BASED CONTRAST AGENT [Suspect]
     Route: 042
     Dates: start: 20061224, end: 20061224
  12. UNSPECIFIED GADOLINIUM BASED CONTRAST AGENT [Suspect]
     Dosage: TOTAL DAILY DOSE: 40 ML
     Route: 042
     Dates: start: 20061220, end: 20061220

REACTIONS (9)
  - HYPOAESTHESIA [None]
  - JOINT RANGE OF MOTION DECREASED [None]
  - MUSCULAR WEAKNESS [None]
  - MUSCULOSKELETAL STIFFNESS [None]
  - NEPHROGENIC SYSTEMIC FIBROSIS [None]
  - OEDEMA [None]
  - PAIN [None]
  - SKIN HYPERTROPHY [None]
  - SKIN INDURATION [None]
